FAERS Safety Report 14388931 (Version 2)
Quarter: 2018Q2

REPORT INFORMATION
  Report Type: Spontaneous
  Country: US (occurrence: US)
  Receive Date: 20180115
  Receipt Date: 20180625
  Transmission Date: 20180711
  Serious: Yes (Other)
  Sender: FDA-Public Use
  Company Number: US-SA-2017SA230703

PATIENT
  Age: 39 Year
  Sex: Female
  Weight: 95.7 kg

DRUGS (5)
  1. TAXOTERE [Suspect]
     Active Substance: DOCETAXEL
     Indication: BREAST CANCER
     Dosage: 165 MG, QOD
     Route: 042
     Dates: start: 20120405, end: 20120405
  2. TAXOTERE [Suspect]
     Active Substance: DOCETAXEL
     Dosage: 165 MG, QOW
     Route: 042
     Dates: start: 20120517, end: 20120517
  3. DOXORUBICIN [Concomitant]
     Active Substance: DOXORUBICIN
  4. NEOSAR [Concomitant]
     Active Substance: CYCLOPHOSPHAMIDE
  5. TAMOXIFEN [Concomitant]
     Active Substance: TAMOXIFEN

REACTIONS (3)
  - Emotional distress [Unknown]
  - Alopecia [Recovering/Resolving]
  - Anxiety [Unknown]

NARRATIVE: CASE EVENT DATE: 201212
